FAERS Safety Report 5250336-X (Version None)
Quarter: 2007Q1

REPORT INFORMATION
  Report Type: 
  Country: None (occurrence: None)
  Receive Date: 20070228
  Receipt Date: 20060327
  Transmission Date: 20070707
  Serious: No
  Sender: FDA-Public Use
  Company Number: US-GLAXOSMITHKLINE-A0599590A

PATIENT
  Age: 31 Year
  Sex: Female

DRUGS (3)
  1. LAMICTAL [Suspect]
     Dosage: 650MG PER DAY
     Route: 048
     Dates: start: 20040801
  2. TEGRETOL [Concomitant]
     Route: 065
     Dates: end: 20040801
  3. MINOCYCLINE HCL [Concomitant]

REACTIONS (2)
  - ANOREXIA [None]
  - PREGNANCY [None]
